FAERS Safety Report 21867649 (Version 1)
Quarter: 2023Q1

REPORT INFORMATION
  Report Type: Spontaneous
  Country: BR (occurrence: BR)
  Receive Date: 20230116
  Receipt Date: 20230116
  Transmission Date: 20230418
  Serious: Yes (Other)
  Sender: FDA-Public Use
  Company Number: BR-SA-SAC20230112000189

PATIENT
  Age: 6 Year
  Sex: Female

DRUGS (1)
  1. LEVOCETIRIZINE [Suspect]
     Active Substance: LEVOCETIRIZINE
     Dosage: 5 MILLIGRAM PER MILLILITRE

REACTIONS (1)
  - Gaze palsy [Recovered/Resolved]
